FAERS Safety Report 15255195 (Version 2)
Quarter: 2018Q3

REPORT INFORMATION
  Report Type: Spontaneous
  Country: JP (occurrence: JP)
  Receive Date: 20180808
  Receipt Date: 20180830
  Transmission Date: 20181010
  Serious: Yes (Hospitalization, Congenital Anomaly, Other)
  Sender: FDA-Public Use
  Company Number: JP-PFIZER INC-2018311816

PATIENT
  Sex: Female
  Weight: 1.45 kg

DRUGS (2)
  1. CISPLATIN. [Suspect]
     Active Substance: CISPLATIN
     Indication: CERVIX CARCINOMA STAGE II
     Dosage: 50 MG/M2, EVERY 3 WEEKS (FROM 17 TO 26 WEEKS)
     Route: 064
  2. PACLITAXEL. [Suspect]
     Active Substance: PACLITAXEL
     Indication: CERVIX CARCINOMA STAGE II
     Dosage: 135 MG/M2, EVERY 3 WEEKS  (FROM 17 TO 26 WEEKS)
     Route: 064

REACTIONS (2)
  - Maternal exposure during pregnancy [Unknown]
  - Keratitis-ichthyosis-deafness syndrome [Recovering/Resolving]
